FAERS Safety Report 23337797 (Version 3)
Quarter: 2024Q3

REPORT INFORMATION
  Report Type: Spontaneous
  Country: US (occurrence: US)
  Receive Date: 20231226
  Receipt Date: 20240902
  Transmission Date: 20241016
  Serious: No
  Sender: IPSEN
  Company Number: US-Ipsen Biopharmaceuticals, Inc.-2023-28129

PATIENT
  Sex: Female

DRUGS (2)
  1. SOHONOS [Suspect]
     Active Substance: PALOVAROTENE
     Indication: Fibrodysplasia ossificans progressiva
     Dosage: UNKNOWN
     Route: 048
  2. SOHONOS [Suspect]
     Active Substance: PALOVAROTENE
     Dosage: FLARE DOSE
     Route: 048
     Dates: start: 202312

REACTIONS (2)
  - Fall [Unknown]
  - Rash pruritic [Unknown]
